FAERS Safety Report 11823594 (Version 1)
Quarter: 2015Q4

REPORT INFORMATION
  Report Type: Spontaneous
  Country: US (occurrence: US)
  Receive Date: 20151210
  Receipt Date: 20151210
  Transmission Date: 20160305
  Serious: No
  Sender: FDA-Public Use
  Company Number: US-PFIZER INC-2015414258

PATIENT
  Age: 68 Year
  Sex: Female
  Weight: 62 kg

DRUGS (1)
  1. FLUCONAZOLE. [Suspect]
     Active Substance: FLUCONAZOLE
     Indication: PLATELET DISORDER
     Dosage: 200 MG, 2X/DAY
     Route: 048
     Dates: start: 201509, end: 20151119

REACTIONS (1)
  - Drug ineffective for unapproved indication [Unknown]
